FAERS Safety Report 13922965 (Version 1)
Quarter: 2017Q3

REPORT INFORMATION
  Report Type: Spontaneous
  Country: US (occurrence: US)
  Receive Date: 20170830
  Receipt Date: 20170830
  Transmission Date: 20171127
  Serious: Yes (Hospitalization, Other)
  Sender: FDA-Public Use
  Company Number: US-009507513-1708USA010195

PATIENT
  Age: 61 Year
  Sex: Female

DRUGS (1)
  1. BRIDION [Suspect]
     Active Substance: SUGAMMADEX
     Indication: NEUROMUSCULAR BLOCKADE REVERSAL
     Dosage: STRENGTH: 100 MG/ML
     Route: 042
     Dates: start: 20170713, end: 20170713

REACTIONS (2)
  - Anaphylactic reaction [Recovering/Resolving]
  - Tryptase increased [Recovering/Resolving]

NARRATIVE: CASE EVENT DATE: 201707
